FAERS Safety Report 13922656 (Version 1)
Quarter: 2017Q3

REPORT INFORMATION
  Report Type: Other
  Country: US (occurrence: US)
  Receive Date: 20170830
  Receipt Date: 20170830
  Transmission Date: 20171127
  Serious: Yes (Other)
  Sender: FDA-Public Use
  Company Number: US-FAMILY DOLLAR SERVICES, INC-2025330

PATIENT
  Age: 5 Year
  Sex: Female

DRUGS (1)
  1. CHILDRENS PAIN RELIEVER [Suspect]
     Active Substance: ACETAMINOPHEN
     Indication: PYREXIA
     Route: 048
     Dates: start: 20141007

REACTIONS (19)
  - Shock [None]
  - Eye disorder [None]
  - Emotional disorder [None]
  - Scar [None]
  - Pneumonia [None]
  - Cardiac disorder [None]
  - Varicella [None]
  - Toxic epidermal necrolysis [Recovering/Resolving]
  - Stevens-Johnson syndrome [None]
  - Erythema multiforme [None]
  - Purpura fulminans [None]
  - Vocal cord disorder [None]
  - Respiratory failure [None]
  - Finger amputation [None]
  - Post-traumatic stress disorder [None]
  - Superinfection bacterial [None]
  - Bacterial sepsis [None]
  - Skin necrosis [None]
  - Asthenia [None]

NARRATIVE: CASE EVENT DATE: 20141007
